FAERS Safety Report 24259927 (Version 1)
Quarter: 2024Q3

REPORT INFORMATION
  Report Type: Spontaneous
  Country: US (occurrence: US)
  Receive Date: 20240828
  Receipt Date: 20240828
  Transmission Date: 20241017
  Serious: Yes (Hospitalization, Disabling, Other)
  Sender: SANOFI AVENTIS
  Company Number: US-SA-SAC20240821000962

PATIENT
  Sex: Female

DRUGS (9)
  1. AUBAGIO [Suspect]
     Active Substance: TERIFLUNOMIDE
     Indication: Multiple sclerosis
     Dosage: UNK
     Route: 065
  2. DILTIAZEM HYDROCHLORIDE [Suspect]
     Active Substance: DILTIAZEM HYDROCHLORIDE
     Dosage: UNK
  3. FLUCONAZOLE [Concomitant]
     Active Substance: FLUCONAZOLE
  4. NIFEDIPINE [Concomitant]
     Active Substance: NIFEDIPINE
  5. PREDNISONE [Concomitant]
     Active Substance: PREDNISONE
  6. ROSUVASTATIN [Concomitant]
     Active Substance: ROSUVASTATIN\ROSUVASTATIN CALCIUM
  7. TIZANIDINE [Concomitant]
     Active Substance: TIZANIDINE
  8. XARELTO [Concomitant]
     Active Substance: RIVAROXABAN
  9. LEVETIRACETAM [Concomitant]
     Active Substance: LEVETIRACETAM

REACTIONS (17)
  - Multiple sclerosis relapse [Not Recovered/Not Resolved]
  - Balance disorder [Not Recovered/Not Resolved]
  - Chest pain [Not Recovered/Not Resolved]
  - Muscular weakness [Not Recovered/Not Resolved]
  - Tremor [Not Recovered/Not Resolved]
  - Hypoaesthesia [Not Recovered/Not Resolved]
  - Migraine [Not Recovered/Not Resolved]
  - Dizziness [Not Recovered/Not Resolved]
  - Gait disturbance [Not Recovered/Not Resolved]
  - Loss of personal independence in daily activities [Not Recovered/Not Resolved]
  - Urinary incontinence [Not Recovered/Not Resolved]
  - Bowel movement irregularity [Not Recovered/Not Resolved]
  - Visual impairment [Not Recovered/Not Resolved]
  - Hypotension [Not Recovered/Not Resolved]
  - Pain in extremity [Not Recovered/Not Resolved]
  - Paraesthesia [Not Recovered/Not Resolved]
  - Nausea [Not Recovered/Not Resolved]
